FAERS Safety Report 5502564-3 (Version None)
Quarter: 2007Q4

REPORT INFORMATION
  Report Type: 
  Country: None (occurrence: None)
  Receive Date: 20071031
  Receipt Date: 20071022
  Transmission Date: 20080405
  Serious: Yes (Other)
  Sender: FDA-Public Use
  Company Number: PHNU2007DE03097

PATIENT

DRUGS (1)
  1. PROVAS COMP [Suspect]
     Route: 048

REACTIONS (1)
  - PULMONARY HAEMORRHAGE [None]
